FAERS Safety Report 15011632 (Version 1)
Quarter: 2018Q2

REPORT INFORMATION
  Report Type: Spontaneous
  Country: US (occurrence: US)
  Receive Date: 20180614
  Receipt Date: 20180614
  Transmission Date: 20180711
  Serious: Yes (Other)
  Sender: FDA-Public Use
  Company Number: US-GLAXOSMITHKLINE-US2018104491

PATIENT
  Sex: Female

DRUGS (7)
  1. COENZYME Q10 [Concomitant]
     Active Substance: UBIDECARENONE
  2. BENLYSTA [Suspect]
     Active Substance: BELIMUMAB
     Indication: SYSTEMIC LUPUS ERYTHEMATOSUS
     Dosage: UNK, CYC
     Route: 042
     Dates: start: 201710
  3. LEUCOVORIN. [Concomitant]
     Active Substance: LEUCOVORIN
  4. IBUPROFEN. [Concomitant]
     Active Substance: IBUPROFEN
  5. METHOTREXATE. [Concomitant]
     Active Substance: METHOTREXATE
  6. ZOFRAN [Concomitant]
     Active Substance: ONDANSETRON HYDROCHLORIDE
  7. FOLIC ACID. [Concomitant]
     Active Substance: FOLIC ACID

REACTIONS (10)
  - Nasopharyngitis [Unknown]
  - Nasal congestion [Unknown]
  - Cough [Unknown]
  - Myalgia [Unknown]
  - Fatigue [Unknown]
  - Paranasal sinus discomfort [Unknown]
  - Rhinorrhoea [Unknown]
  - Feeling drunk [Unknown]
  - Chest pain [Unknown]
  - Altered state of consciousness [Unknown]
